FAERS Safety Report 6515075-3 (Version None)
Quarter: 2009Q4

REPORT INFORMATION
  Report Type: 
  Country: None (occurrence: None)
  Receive Date: 20091223
  Receipt Date: 20091215
  Transmission Date: 20100525
  Serious: Yes (Disabling)
  Sender: FDA-Public Use
  Company Number: GB-RANBAXY-2008RR-15278

PATIENT
  Age: 79 Year
  Sex: Female
  Weight: 60 kg

DRUGS (7)
  1. CEPHALEXIN [Suspect]
     Indication: LOWER RESPIRATORY TRACT INFECTION
     Dosage: 250 MG, UNK
     Route: 048
     Dates: start: 20080425, end: 20080504
  2. CO-AMILOFRUSE [Concomitant]
     Indication: CARDIOVASCULAR DISORDER
     Dosage: 2 DF, QD
     Route: 048
  3. CODEINE [Concomitant]
     Indication: PAIN
     Dosage: 30 MG, UNK
     Route: 048
     Dates: start: 20080416, end: 20080418
  4. IRBESARTAN [Concomitant]
     Indication: CARDIOVASCULAR DISORDER
     Dosage: 300 MG, UNK
     Route: 048
  5. PHENYTOIN [Concomitant]
     Indication: EPILEPSY
     Dosage: 250 MG, UNK
     Route: 048
  6. SIMVASTATIN [Concomitant]
     Indication: HYPERCHOLESTEROLAEMIA
     Dosage: 20 MG, UNK
     Route: 048
  7. WARFARIN SODIUM [Concomitant]
     Indication: THROMBOCYTOPENIA
     Dosage: UNK
     Route: 048

REACTIONS (2)
  - BLISTER [None]
  - PRURITUS [None]
